FAERS Safety Report 13273330 (Version 6)
Quarter: 2017Q2

REPORT INFORMATION
  Report Type: Report from Study
  Country: US (occurrence: US)
  Receive Date: 20170227
  Receipt Date: 20170511
  Transmission Date: 20170830
  Serious: Yes (Death, Life-Threatening, Hospitalization, Other)
  Sender: FDA-Public Use
  Company Number: US-ALEXION PHARMACEUTICALS INC.-A201701739

PATIENT
  Age: 24 Year
  Sex: Male

DRUGS (1)
  1. SOLIRIS [Suspect]
     Active Substance: ECULIZUMAB
     Indication: PRODUCT USED FOR UNKNOWN INDICATION
     Route: 042

REACTIONS (13)
  - Congestive cardiomyopathy [Unknown]
  - Pulmonary embolism [Unknown]
  - Pulmonary alveolar haemorrhage [Unknown]
  - Cholecystitis acute [Unknown]
  - Haematocrit abnormal [Unknown]
  - Cardiac failure [Unknown]
  - Lung consolidation [Unknown]
  - Platelet count decreased [Unknown]
  - Respiratory failure [Fatal]
  - Staphylococcal bacteraemia [Unknown]
  - Haemoglobin decreased [Unknown]
  - Weaning failure [Unknown]
  - Blood urea abnormal [Unknown]

NARRATIVE: CASE EVENT DATE: 20170324
